FAERS Safety Report 10102095 (Version 1)
Quarter: 2014Q2

REPORT INFORMATION
  Report Type: Spontaneous
  Country: US (occurrence: None)
  Receive Date: 20140423
  Receipt Date: 20140423
  Transmission Date: 20141212
  Serious: Yes (Death)
  Sender: FDA-Public Use
  Company Number: None

PATIENT
  Age: 41 Year
  Sex: Male
  Weight: 76.66 kg

DRUGS (8)
  1. LINEZOLID [Suspect]
     Indication: SEPSIS
  2. DAPTOMYCIN [Suspect]
     Indication: SEPSIS
  3. LINEZOLID [Concomitant]
  4. DAPTOMYCIN [Concomitant]
  5. NAFCILLIN [Concomitant]
  6. CEFTAROLINE [Concomitant]
  7. GENTAMICIN [Concomitant]
  8. VANCOMYCIN [Concomitant]

REACTIONS (3)
  - Abscess [None]
  - Staphylococcus test positive [None]
  - Blood culture positive [None]
